FAERS Safety Report 8078604-7 (Version None)
Quarter: 2012Q1

REPORT INFORMATION
  Report Type: 
  Country: None (occurrence: None)
  Receive Date: 20120124
  Receipt Date: 20120112
  Transmission Date: 20120608
  Serious: Yes (Other)
  Sender: FDA-Public Use
  Company Number: 1000027142

PATIENT
  Age: 61 Year
  Sex: Female

DRUGS (4)
  1. MEMANTINE HYDROCHLORIDE [Suspect]
     Indication: DEMENTIA ALZHEIMER'S TYPE
     Dosage: 20 MG (20 MG, 1 IN 1 D)
     Dates: end: 20120108
  2. KEPPRA [Suspect]
     Indication: EPILEPSY
     Dosage: 500 MG (250 MG, 2 IN 1 D)
     Dates: start: 20120101, end: 20120108
  3. URBANYL (CLOBAZAM)-(CLOBAZAM) [Concomitant]
  4. TRANSIPEG (MACROGOL) (MACROGOL) [Concomitant]

REACTIONS (4)
  - HAEMOGLOBIN DECREASED [None]
  - HEPATITIS FULMINANT [None]
  - GASTRIC HAEMORRHAGE [None]
  - RECTAL HAEMORRHAGE [None]
